FAERS Safety Report 9928668 (Version 1)
Quarter: 2014Q1

REPORT INFORMATION
  Report Type: Spontaneous
  Country: FI (occurrence: FI)
  Receive Date: 20140227
  Receipt Date: 20140227
  Transmission Date: 20141002
  Serious: Yes (Death, Hospitalization, Other)
  Sender: FDA-Public Use
  Company Number: PHHY2014FI019910

PATIENT
  Age: 85 Year
  Sex: Female

DRUGS (5)
  1. VENLAFAXINE [Suspect]
     Route: 042
  2. OXAZEPAM [Suspect]
  3. TEMAZEPAM [Suspect]
  4. CITALOPRAM [Suspect]
  5. DESMETHYLDIAZEPAM [Suspect]

REACTIONS (5)
  - Toxicity to various agents [Fatal]
  - Loss of consciousness [Fatal]
  - Coma [Fatal]
  - Pain [Unknown]
  - Vomiting [Unknown]
